FAERS Safety Report 8474591 (Version 6)
Quarter: 2012Q4

REPORT INFORMATION
  Report Type: 
  Country: US (occurrence: US)
  Receive Date: 20120323
  Receipt Date: 20121004
  Transmission Date: 20130627
  Serious: Yes (Hospitalization, Congenital Anomaly)
  Sender: FDA-Public Use
  Company Number: US-JNJFOC-20120308533

PATIENT
  Sex: Female

DRUGS (7)
  1. TOPAMAX [Suspect]
     Indication: FOETAL EXPOSURE DURING PREGNANCY
     Route: 064
     Dates: start: 20051021
  2. TOPAMAX [Suspect]
     Indication: FOETAL EXPOSURE DURING PREGNANCY
     Route: 064
  3. TOPAMAX [Suspect]
     Indication: FOETAL EXPOSURE DURING PREGNANCY
     Route: 064
  4. TOPAMAX [Suspect]
     Indication: FOETAL EXPOSURE DURING PREGNANCY
     Route: 064
  5. NITROFURANTOIN [Suspect]
     Indication: FOETAL EXPOSURE DURING PREGNANCY
     Route: 064
     Dates: start: 20051129
  6. UNSPECIFIED [Suspect]
     Indication: FOETAL EXPOSURE DURING PREGNANCY
     Route: 064
     Dates: start: 20051024
  7. MIDRIN [Suspect]
     Indication: FOETAL EXPOSURE DURING PREGNANCY
     Route: 064

REACTIONS (35)
  - Optic nerve hypoplasia [Unknown]
  - Bronchopulmonary dysplasia [Unknown]
  - Premature baby [Not Recovered/Not Resolved]
  - Microphthalmos [Unknown]
  - Cleft lip and palate [Recovering/Resolving]
  - Tongue disorder [Recovered/Resolved]
  - Cryptophthalmos [Unknown]
  - Pterygium colli [Unknown]
  - Amniotic band syndrome [Recovering/Resolving]
  - Atrial septal defect [Unknown]
  - Patent ductus arteriosus [Recovered/Resolved]
  - Congenital heart valve disorder [Unknown]
  - Neonatal respiratory distress syndrome [Unknown]
  - Encephalomalacia [Unknown]
  - Central nervous system necrosis [Unknown]
  - Nerve degeneration [Unknown]
  - Gastrooesophageal reflux disease [Recovered/Resolved]
  - Epistaxis [Unknown]
  - Atelectasis [Unknown]
  - Sleep apnoea syndrome [Unknown]
  - Aspiration [Recovered/Resolved]
  - Failure to thrive [Unknown]
  - Tonsillar hypertrophy [Unknown]
  - Dysphagia [Recovered/Resolved]
  - Otitis media [Recovered/Resolved]
  - Maternal drugs affecting foetus [None]
  - Visual pathway disorder [None]
  - Anophthalmos [None]
  - Bicuspid aortic valve [None]
  - Skull malformation [None]
  - Cortical laminar necrosis [None]
  - Conjunctival haemorrhage [None]
  - Deformity of orbit [None]
  - Transplant [None]
  - Tooth disorder [None]
